FAERS Safety Report 9826695 (Version 2)
Quarter: 2014Q1

REPORT INFORMATION
  Report Type: Spontaneous
  Country: US (occurrence: US)
  Receive Date: 20140117
  Receipt Date: 20140210
  Transmission Date: 20141002
  Serious: Yes (Death, Hospitalization)
  Sender: FDA-Public Use
  Company Number: US-JNJFOC-20140107259

PATIENT
  Age: 56 Year
  Sex: Female
  Weight: 77.57 kg

DRUGS (9)
  1. STELARA [Suspect]
     Indication: PSORIASIS
     Route: 058
  2. STELARA [Suspect]
     Indication: PSORIATIC ARTHROPATHY
     Route: 058
  3. LEFLUNOMIDE [Suspect]
     Indication: ARTHRITIS
     Route: 065
  4. LOVASTATIN [Concomitant]
     Indication: BLOOD CHOLESTEROL INCREASED
     Route: 065
  5. COREG [Concomitant]
     Indication: VITAMIN B6
     Route: 065
  6. LEXAPRO [Concomitant]
     Indication: DEPRESSION
     Route: 065
  7. SYNTHROID [Concomitant]
     Indication: HYPOTHYROIDISM
     Route: 065
  8. LORTAB [Concomitant]
     Indication: PAIN
     Dosage: 10-500 MG
     Route: 065
  9. SOMA [Concomitant]
     Indication: MUSCLE SPASMS
     Route: 065

REACTIONS (1)
  - Pneumonia viral [Fatal]
